FAERS Safety Report 7656074-8 (Version None)
Quarter: 2011Q3

REPORT INFORMATION
  Report Type: 
  Country: None (occurrence: None)
  Receive Date: 20110804
  Receipt Date: 20110726
  Transmission Date: 20111222
  Serious: Yes (Disabling)
  Sender: FDA-Public Use
  Company Number: GB-ROCHE-792279

PATIENT
  Age: 30 Year
  Sex: Female

DRUGS (1)
  1. ISOTRETINOIN [Suspect]
     Indication: ACNE
     Route: 048
     Dates: start: 20100323, end: 20100325

REACTIONS (4)
  - MEMORY IMPAIRMENT [None]
  - AGGRESSION [None]
  - DEPRESSION [None]
  - MOOD ALTERED [None]
